FAERS Safety Report 19087228 (Version 2)
Quarter: 2021Q2

REPORT INFORMATION
  Report Type: Spontaneous
  Country: US (occurrence: US)
  Receive Date: 20210402
  Receipt Date: 20210412
  Transmission Date: 20210717
  Serious: No
  Sender: FDA-Public Use
  Company Number: US-AMGEN-USASP2021048720

PATIENT
  Age: 69 Year
  Sex: Female

DRUGS (3)
  1. COENZYME Q10 [Concomitant]
     Active Substance: DIETARY SUPPLEMENT\UBIDECARENONE
     Indication: HYPERCHOLESTEROLAEMIA
     Dosage: 200 MICROGRAM, QD
  2. REPATHA [Suspect]
     Active Substance: EVOLOCUMAB
     Indication: HYPERCHOLESTEROLAEMIA
     Dosage: 140 MILLIGRAM, Q2WK
     Route: 058
     Dates: start: 2020
  3. EZETIMIBE. [Concomitant]
     Active Substance: EZETIMIBE
     Indication: HYPERCHOLESTEROLAEMIA
     Dosage: 10 MILLIGRAM, QD

REACTIONS (4)
  - Injection site swelling [Not Recovered/Not Resolved]
  - Accidental exposure to product [Unknown]
  - Injection site discolouration [Not Recovered/Not Resolved]
  - Injection site bruising [Recovering/Resolving]

NARRATIVE: CASE EVENT DATE: 202103
